FAERS Safety Report 6340944-7 (Version None)
Quarter: 2009Q3

REPORT INFORMATION
  Report Type: 
  Country: None (occurrence: None)
  Receive Date: 20090904
  Receipt Date: 20090831
  Transmission Date: 20100115
  Serious: Yes (Other)
  Sender: FDA-Public Use
  Company Number: US-JNJCH-2009023497

PATIENT
  Age: 3 Year
  Sex: Male
  Weight: 15 kg

DRUGS (1)
  1. LISTERINE AGENT COOL BLUE BUBBLE BLAST [Suspect]
     Indication: DENTAL CARE
     Dosage: TEXT:ONCE
     Route: 048
     Dates: start: 20090821, end: 20090821

REACTIONS (5)
  - HYPERSENSITIVITY [None]
  - OEDEMA PERIPHERAL [None]
  - RASH MACULAR [None]
  - SWELLING [None]
  - VIRAL INFECTION [None]
